FAERS Safety Report 5607893-0 (Version None)
Quarter: 2008Q1

REPORT INFORMATION
  Report Type: 
  Country: None (occurrence: None)
  Receive Date: 20080130
  Receipt Date: 20070716
  Transmission Date: 20080703
  Serious: No
  Sender: FDA-Public Use
  Company Number: US-ASTRAZENECA-2007UW16842

PATIENT
  Age: 66 Year
  Sex: Female
  Weight: 86.2 kg

DRUGS (1)
  1. ACCOLATE [Suspect]
     Indication: HYPERSENSITIVITY
     Route: 048

REACTIONS (2)
  - DIZZINESS [None]
  - SOMNOLENCE [None]
